FAERS Safety Report 7823000-8 (Version None)
Quarter: 2011Q4

REPORT INFORMATION
  Report Type: 
  Country: None (occurrence: None)
  Receive Date: 20111018
  Receipt Date: 20110308
  Transmission Date: 20120403
  Serious: No
  Sender: FDA-Public Use
  Company Number: US-ASTRAZENECA-2011SE12950

PATIENT
  Age: 72 Year
  Sex: Female

DRUGS (1)
  1. SYMBICORT [Suspect]
     Route: 055
     Dates: start: 20090101

REACTIONS (5)
  - EYE DISORDER [None]
  - VISUAL ACUITY REDUCED [None]
  - DIABETIC RETINOPATHY [None]
  - DIABETES MELLITUS [None]
  - CARDIAC DISORDER [None]
